FAERS Safety Report 6755722-4 (Version None)
Quarter: 2010Q2

REPORT INFORMATION
  Report Type: 
  Country: None (occurrence: None)
  Receive Date: 20100604
  Receipt Date: 20100528
  Transmission Date: 20101027
  Serious: Yes (Hospitalization)
  Sender: FDA-Public Use
  Company Number: FR-ABBOTT-10P-056-0617476-00

PATIENT
  Age: 76 Year
  Sex: Male

DRUGS (13)
  1. DEPAKENE [Suspect]
     Indication: DRUG USE FOR UNKNOWN INDICATION
     Route: 048
  2. IXPRIM [Suspect]
     Indication: DRUG USE FOR UNKNOWN INDICATION
     Route: 048
     Dates: end: 20090513
  3. DEROXAT [Suspect]
     Indication: DRUG USE FOR UNKNOWN INDICATION
     Route: 048
  4. LORAZEPAM [Suspect]
     Indication: DRUG USE FOR UNKNOWN INDICATION
     Route: 048
     Dates: end: 20090522
  5. NEXIUM [Suspect]
     Indication: DRUG USE FOR UNKNOWN INDICATION
     Route: 048
     Dates: end: 20090522
  6. LOXEN [Suspect]
     Indication: DRUG USE FOR UNKNOWN INDICATION
     Dosage: EXTENDED RELEASE. 2 IN 1 D
     Route: 048
  7. VALIUM [Suspect]
     Indication: DRUG USE FOR UNKNOWN INDICATION
     Route: 048
     Dates: start: 20090512, end: 20090522
  8. DIPIPERON [Suspect]
     Indication: DRUG USE FOR UNKNOWN INDICATION
     Dates: start: 20090314, end: 20090522
  9. FURADANTINE [Suspect]
     Indication: DRUG USE FOR UNKNOWN INDICATION
     Route: 048
     Dates: start: 20090516, end: 20090523
  10. KARDEGIC [Concomitant]
     Indication: DRUG USE FOR UNKNOWN INDICATION
  11. B COMPLEX ELX [Concomitant]
     Indication: DRUG USE FOR UNKNOWN INDICATION
  12. FORLAX [Concomitant]
     Indication: DRUG USE FOR UNKNOWN INDICATION
  13. PARACETAMOL [Concomitant]
     Indication: DRUG USE FOR UNKNOWN INDICATION

REACTIONS (1)
  - FALL [None]
